FAERS Safety Report 9261361 (Version 1)
Quarter: 2013Q2

REPORT INFORMATION
  Report Type: Spontaneous
  Country: US (occurrence: US)
  Receive Date: 20130429
  Receipt Date: 20130429
  Transmission Date: 20140414
  Serious: Yes (Congenital Anomaly, Other)
  Sender: FDA-Public Use
  Company Number: US-PFIZER INC-2013130003

PATIENT
  Sex: Female

DRUGS (4)
  1. ZOLOFT [Suspect]
     Indication: DEPRESSION
     Dosage: UNK
     Route: 064
     Dates: start: 200712, end: 2012
  2. SERTRALINE HCL [Suspect]
     Indication: DEPRESSION
     Dosage: UNK
     Route: 064
     Dates: start: 200712, end: 2012
  3. BUSPAR [Concomitant]
     Dosage: UNK
     Route: 064
  4. PRENATAL VITAMINS [Concomitant]
     Dosage: UNK
     Route: 064

REACTIONS (5)
  - Maternal exposure during pregnancy [Unknown]
  - Cleft lip [Unknown]
  - Cleft palate [Unknown]
  - Congenital anomaly [Unknown]
  - Premature baby [Unknown]
